FAERS Safety Report 10982770 (Version 1)
Quarter: 2015Q2

REPORT INFORMATION
  Report Type: Spontaneous
  Country: JP (occurrence: JP)
  Receive Date: 20150403
  Receipt Date: 20150403
  Transmission Date: 20150821
  Serious: Yes (Other)
  Sender: FDA-Public Use
  Company Number: JP-TAKEDA-2015MPI001813

PATIENT
  Age: 66 Year
  Sex: Male

DRUGS (5)
  1. VELCADE [Suspect]
     Active Substance: BORTEZOMIB
     Indication: AMYLOIDOSIS
     Dosage: 1.3 MG/M2, UNK
     Route: 058
  2. CYCLOPHOSPHAMID [Concomitant]
     Active Substance: CYCLOPHOSPHAMIDE
     Indication: AMYLOIDOSIS
     Route: 065
  3. ACYCLOVIR. [Concomitant]
     Active Substance: ACYCLOVIR
     Indication: PROPHYLAXIS
     Dosage: DOSAGE FORM: UNSPECIFIED
     Route: 065
  4. ADRENOCORTICAL HORMONE [Concomitant]
     Active Substance: CORTICOSTEROID NOS
     Dosage: DOSAGE FORM: UNSPECIFIED
     Route: 065
  5. DEXAMETHASONE. [Concomitant]
     Active Substance: DEXAMETHASONE
     Indication: AMYLOIDOSIS
     Route: 065

REACTIONS (5)
  - Interstitial lung disease [Unknown]
  - Thrombocytopenia [Unknown]
  - Product use issue [Unknown]
  - Anaemia [Unknown]
  - Neutropenia [Unknown]
